FAERS Safety Report 14465840 (Version 1)
Quarter: 2018Q1

REPORT INFORMATION
  Report Type: Spontaneous
  Country: CN (occurrence: CN)
  Receive Date: 20180131
  Receipt Date: 20180131
  Transmission Date: 20180509
  Serious: Yes (Other)
  Sender: FDA-Public Use
  Company Number: CN-ACCORD-062970

PATIENT
  Age: 20 Year
  Sex: Female

DRUGS (2)
  1. TEGAFUR/GIMERACIL/OTERACIL POTASSIUM [Suspect]
     Active Substance: GIMERACIL\OTERACIL\TEGAFUR
     Indication: MALIGNANT MELANOMA
     Dosage: ON DAYS 1-14
  2. GEMCITABINE/GEMCITABINE HYDROCHLORIDE [Suspect]
     Active Substance: GEMCITABINE\GEMCITABINE HYDROCHLORIDE
     Indication: MALIGNANT MELANOMA
     Dosage: ON DAYS 1 AND 8

REACTIONS (4)
  - Anaphylactic shock [Recovering/Resolving]
  - Epilepsy [None]
  - Seizure [Recovering/Resolving]
  - Hypoaesthesia [Recovering/Resolving]
